FAERS Safety Report 22381686 (Version 1)
Quarter: 2023Q2

REPORT INFORMATION
  Report Type: Spontaneous
  Country: IQ (occurrence: None)
  Receive Date: 20230530
  Receipt Date: 20230530
  Transmission Date: 20230721
  Serious: Yes (Other)
  Sender: FDA-Public Use
  Company Number: IQ-ROCHE-3356687

PATIENT
  Sex: Male
  Weight: 32 kg

DRUGS (1)
  1. HEMLIBRA [Suspect]
     Active Substance: EMICIZUMAB-KXWH
     Indication: Factor VIII deficiency
     Route: 058
     Dates: start: 202104

REACTIONS (2)
  - Haematoma [Recovering/Resolving]
  - Mass [Unknown]
